FAERS Safety Report 5953863-2 (Version None)
Quarter: 2008Q4

REPORT INFORMATION
  Report Type: 
  Country: None (occurrence: None)
  Receive Date: 20081114
  Receipt Date: 20081103
  Transmission Date: 20090506
  Serious: Yes (Congenital Anomaly)
  Sender: FDA-Public Use
  Company Number: HU-PFIZER INC-2008095144

PATIENT
  Sex: Male
  Weight: 3.5 kg

DRUGS (2)
  1. ALPRAZOLAM [Suspect]
     Route: 064
  2. TARDYL [Suspect]
     Route: 064

REACTIONS (7)
  - CONGENITAL NOSE MALFORMATION [None]
  - DRUG EXPOSURE DURING PREGNANCY [None]
  - LOW SET EARS [None]
  - MATERNAL DRUGS AFFECTING FOETUS [None]
  - SKULL MALFORMATION [None]
  - STRABISMUS [None]
  - SYNDACTYLY [None]
